FAERS Safety Report 9999804 (Version 3)
Quarter: 2014Q2

REPORT INFORMATION
  Report Type: Spontaneous
  Country: US (occurrence: US)
  Receive Date: 20140312
  Receipt Date: 20140509
  Transmission Date: 20141212
  Serious: Yes (Other)
  Sender: FDA-Public Use
  Company Number: US-PFIZER INC-2014063167

PATIENT
  Sex: Male

DRUGS (1)
  1. VIAGRA [Suspect]
     Dosage: UNK

REACTIONS (5)
  - Dementia [Unknown]
  - Convulsion [Unknown]
  - Osteolysis [Unknown]
  - Hypotension [Unknown]
  - Blood testosterone decreased [Unknown]
